FAERS Safety Report 17538888 (Version 1)
Quarter: 2020Q1

REPORT INFORMATION
  Report Type: Spontaneous
  Country: US (occurrence: US)
  Receive Date: 20200306
  Receipt Date: 20200306
  Transmission Date: 20200409
  Serious: Yes (Hospitalization)
  Sender: FDA-Public Use
  Company Number: None

PATIENT
  Age: 34 Year
  Sex: Female

DRUGS (1)
  1. KYBELLA [Suspect]
     Active Substance: DEOXYCHOLIC ACID
     Dosage: ?          OTHER DOSE:4-6 VIALS;?
     Route: 058

REACTIONS (4)
  - Dyspnoea [None]
  - Swelling [None]
  - Skin necrosis [None]
  - Dialysis [None]
